FAERS Safety Report 11821847 (Version 1)
Quarter: 2015Q4

REPORT INFORMATION
  Report Type: Spontaneous
  Country: US (occurrence: US)
  Receive Date: 20151210
  Receipt Date: 20151210
  Transmission Date: 20160305
  Serious: No
  Sender: FDA-Public Use
  Company Number: US-JNJFOC-20150708985

PATIENT
  Sex: Female

DRUGS (8)
  1. VITAMINS [Concomitant]
     Active Substance: VITAMINS
  2. IMBRUVICA [Suspect]
     Active Substance: IBRUTINIB
     Indication: CHRONIC LYMPHOCYTIC LEUKAEMIA
     Route: 048
     Dates: start: 20140910
  3. ALLOPURINOL. [Concomitant]
     Active Substance: ALLOPURINOL
  4. PAMINE [Concomitant]
     Active Substance: METHSCOPOLAMINE BROMIDE
  5. ASPIRIN. [Concomitant]
     Active Substance: ASPIRIN
  6. KLOR-CON [Concomitant]
     Active Substance: POTASSIUM CHLORIDE
  7. BISOPROLOL [Concomitant]
     Active Substance: BISOPROLOL
  8. NAPROXEN. [Concomitant]
     Active Substance: NAPROXEN

REACTIONS (4)
  - Nail disorder [Unknown]
  - Onychoclasis [Unknown]
  - Rash [Unknown]
  - Skin irritation [Unknown]
